FAERS Safety Report 15641190 (Version 1)
Quarter: 2018Q4

REPORT INFORMATION
  Report Type: Spontaneous
  Country: JP (occurrence: JP)
  Receive Date: 20181120
  Receipt Date: 20181120
  Transmission Date: 20190205
  Serious: Yes (Life-Threatening, Hospitalization, Other)
  Sender: FDA-Public Use
  Company Number: JP-BAUSCH-BL-2018-031795

PATIENT
  Age: 75 Year
  Sex: Male

DRUGS (9)
  1. EPINEPHRINE. [Suspect]
     Active Substance: EPINEPHRINE
     Indication: CARDIOGENIC SHOCK
     Route: 065
  2. TICLOPIDINE [Concomitant]
     Active Substance: TICLOPIDINE
     Indication: ANTIPLATELET THERAPY
  3. GLYCERYL TRINITRATE [Suspect]
     Active Substance: NITROGLYCERIN
     Indication: CARDIOGENIC SHOCK
     Route: 065
  4. XYLOCAINE [Concomitant]
     Active Substance: LIDOCAINE HYDROCHLORIDE
     Indication: LOCAL ANAESTHESIA
     Route: 065
  5. ETILEFRINE [Suspect]
     Active Substance: ETILEFRINE
     Indication: CARDIOGENIC SHOCK
     Route: 065
  6. TELMISARTAN. [Concomitant]
     Active Substance: TELMISARTAN
     Indication: PRODUCT USED FOR UNKNOWN INDICATION
  7. CARVEDILOL. [Concomitant]
     Active Substance: CARVEDILOL
     Indication: PRODUCT USED FOR UNKNOWN INDICATION
  8. ACETYLSALICYLIC ACID [Concomitant]
     Active Substance: ASPIRIN
     Indication: ANTIPLATELET THERAPY
  9. ATORVASTATIN [Concomitant]
     Active Substance: ATORVASTATIN
     Indication: PRODUCT USED FOR UNKNOWN INDICATION

REACTIONS (2)
  - Tachycardia [Recovering/Resolving]
  - Drug ineffective [Recovering/Resolving]
